FAERS Safety Report 14422014 (Version 1)
Quarter: 2018Q1

REPORT INFORMATION
  Report Type: Spontaneous
  Country: US (occurrence: US)
  Receive Date: 20180123
  Receipt Date: 20180123
  Transmission Date: 20180509
  Serious: No
  Sender: FDA-Public Use
  Company Number: US-ENDO PHARMACEUTICALS INC-2017-004957

PATIENT
  Sex: Male
  Weight: 130.16 kg

DRUGS (4)
  1. OXYCONTIN [Suspect]
     Active Substance: OXYCODONE HYDROCHLORIDE
     Indication: BACK PAIN
     Dosage: 30 MG, EVERY EIGHT HOURS
     Route: 065
  2. OXYCODONE HCL 30MG [Concomitant]
     Active Substance: OXYCODONE HYDROCHLORIDE
     Indication: BACK PAIN
  3. OXYMORPHONE [Concomitant]
     Active Substance: OXYMORPHONE
     Indication: BACK PAIN
  4. OPANA ER [Suspect]
     Active Substance: OXYMORPHONE HYDROCHLORIDE
     Indication: BACK PAIN
     Dosage: 40 MG, FIVE TIMES DAILY
     Route: 065

REACTIONS (2)
  - Drug ineffective [Unknown]
  - Medication residue present [Recovered/Resolved]
